FAERS Safety Report 12664486 (Version 4)
Quarter: 2021Q1

REPORT INFORMATION
  Report Type: Spontaneous
  Country: US (occurrence: US)
  Receive Date: 20160818
  Receipt Date: 20210205
  Transmission Date: 20210419
  Serious: No
  Sender: FDA-Public Use
  Company Number: US-PFIZER INC-2016150877

PATIENT
  Age: 36 Year
  Sex: Female

DRUGS (32)
  1. ZOFRAN [Concomitant]
     Active Substance: ONDANSETRON HYDROCHLORIDE
     Indication: NAUSEA
     Dosage: 4 MG, AS NEEDED (4H PRN)
     Route: 048
  2. GAS?X [Concomitant]
     Active Substance: DIMETHICONE
     Dosage: UNK
  3. TRAZODONE [Concomitant]
     Active Substance: TRAZODONE HYDROCHLORIDE
     Dosage: 50 MG, 2X/DAY (BEDTIME)
     Route: 048
  4. PSEUDOEPHEDRINE HCL [Concomitant]
     Active Substance: PSEUDOEPHEDRINE HYDROCHLORIDE
     Indication: NASAL CONGESTION
     Dosage: 30 MG, 3X/DAY (PRN)
     Route: 048
  5. TYLENOL [Concomitant]
     Active Substance: ACETAMINOPHEN
     Dosage: UNK
  6. OVIDE [Concomitant]
     Active Substance: MALATHION
     Dosage: 0.5 %, 1X/DAY (UD)
     Route: 061
  7. VITAMIN D2 [Concomitant]
     Active Substance: ERGOCALCIFEROL
     Dosage: 50000 IU, WEEKLY
     Route: 048
  8. PROAIR HFA [Concomitant]
     Active Substance: ALBUTEROL SULFATE
     Indication: DYSPNOEA
     Dosage: 2 DF, AS NEEDED (2 PUFFS)
  9. ORAL ANALGESIC [Concomitant]
     Dosage: 20 %, UNK
  10. LYRICA [Suspect]
     Active Substance: PREGABALIN
     Indication: NEURALGIA
     Dosage: 300 MG, 2X/DAY
     Route: 048
  11. ATIVAN [Concomitant]
     Active Substance: LORAZEPAM
     Dosage: 1 MG, 3X/DAY (1?2 MG)
     Route: 048
  12. VITAMIN B12 [Concomitant]
     Active Substance: CYANOCOBALAMIN
     Dosage: 1000 UG/ML, MONTHLY
     Route: 030
  13. FENTANYL. [Concomitant]
     Active Substance: FENTANYL
     Dosage: 75 UG (MCG/1 HR PATCH TD), UNK
     Route: 061
  14. FUROSEMIDE. [Concomitant]
     Active Substance: FUROSEMIDE
     Dosage: 20 MG, DAILY
     Route: 048
  15. EPIPEN [Concomitant]
     Active Substance: EPINEPHRINE
     Indication: HYPERSENSITIVITY
     Dosage: 1 DF, UNK (UD)
     Route: 030
  16. ZANTAC [Concomitant]
     Active Substance: RANITIDINE HYDROCHLORIDE
     Indication: GASTROOESOPHAGEAL REFLUX DISEASE
     Dosage: 150 MG, 3X/DAY (PRN)
     Route: 048
  17. CLOBETASOL PROPIONATE E [Concomitant]
     Dosage: 0.05 %, 2X/DAY
     Route: 061
  18. VOLTAREN [Concomitant]
     Active Substance: DICLOFENAC SODIUM
     Indication: OSTEOARTHRITIS
     Dosage: 2 G, 4X/DAY
     Route: 061
  19. ACETAMINOPHEN PM [Concomitant]
     Active Substance: ACETAMINOPHEN\DIPHENHYDRAMINE HYDROCHLORIDE
     Indication: INSOMNIA
     Dosage: (500MG?25 MG TABLET 2), AS NEEDED
     Route: 048
  20. IBUPROFEN. [Concomitant]
     Active Substance: IBUPROFEN
     Dosage: UNK
  21. OMEPRAZOLE. [Concomitant]
     Active Substance: OMEPRAZOLE
     Dosage: 20 MG, 2X/DAY
     Route: 048
  22. REMEDY ANTIFUNGAL [Concomitant]
     Active Substance: MICONAZOLE NITRATE
     Indication: FUNGAL INFECTION
     Dosage: 2 %, 2X/DAY
     Route: 061
  23. CYMBALTA [Concomitant]
     Active Substance: DULOXETINE HYDROCHLORIDE
     Dosage: 60 MG, DAILY
     Route: 048
  24. BROVANA [Concomitant]
     Active Substance: ARFORMOTEROL TARTRATE
     Dosage: (15 MCG/2 ML), 2X/DAY
     Route: 045
  25. MECLIZINE [Concomitant]
     Active Substance: MECLIZINE HYDROCHLORIDE
     Dosage: 25 MG, DAILY
     Route: 048
  26. LYRICA [Suspect]
     Active Substance: PREGABALIN
     Indication: NEUROPATHY PERIPHERAL
  27. CORGARD [Concomitant]
     Active Substance: NADOLOL
     Dosage: 40 MG, 1X/DAY
     Route: 048
  28. MIRALAX [Concomitant]
     Active Substance: POLYETHYLENE GLYCOL 3350
     Dosage: 17 G, DAILY
     Route: 048
  29. FLUCONAZOLE. [Concomitant]
     Active Substance: FLUCONAZOLE
     Dosage: 100 MG, DAILY
     Route: 048
  30. HYDROXYZINE PAMOATE. [Concomitant]
     Active Substance: HYDROXYZINE PAMOATE
     Dosage: 50 MG, 1X/DAY
     Route: 048
  31. BENADRYL [Concomitant]
     Active Substance: DIPHENHYDRAMINE HYDROCHLORIDE
     Indication: RASH
     Dosage: 25 MG, AS NEEDED (BID)
     Route: 048
  32. PULMICORT TURBUHALER [Concomitant]
     Active Substance: BUDESONIDE
     Dosage: (0.5 MG/2 ML), 2X/DAY
     Route: 045

REACTIONS (6)
  - Pain [Unknown]
  - Tremor [Unknown]
  - Malaise [Unknown]
  - Sleep disorder [Unknown]
  - Amnesia [Unknown]
  - Pain in extremity [Unknown]
